FAERS Safety Report 5760709-4 (Version None)
Quarter: 2008Q2

REPORT INFORMATION
  Report Type: 
  Country: None (occurrence: None)
  Receive Date: 20080606
  Receipt Date: 20080206
  Transmission Date: 20081010
  Serious: No
  Sender: FDA-Public Use
  Company Number: US-BAYER-200813500NA

PATIENT
  Age: 41 Year
  Sex: Female
  Weight: 87 kg

DRUGS (1)
  1. MIRENA [Suspect]
     Indication: DRUG USE FOR UNKNOWN INDICATION
     Route: 015
     Dates: start: 20070707

REACTIONS (2)
  - PELVIC DISCOMFORT [None]
  - PROCEDURAL PAIN [None]
